FAERS Safety Report 24146981 (Version 2)
Quarter: 2025Q2

REPORT INFORMATION
  Report Type: Spontaneous
  Country: US (occurrence: None)
  Receive Date: 20240729
  Receipt Date: 20250422
  Transmission Date: 20250716
  Serious: Yes (Hospitalization, Other)
  Sender: INCYTE
  Company Number: US-INCYTE CORPORATION-2024IN007646

PATIENT
  Weight: 99.773 kg

DRUGS (3)
  1. JAKAFI [Suspect]
     Active Substance: RUXOLITINIB
     Indication: Graft versus host disease
     Dosage: 10 MILLIGRAM, BID
  2. JAKAFI [Suspect]
     Active Substance: RUXOLITINIB
     Indication: Chronic graft versus host disease
     Dosage: 10 MILLIGRAM, QD
  3. ELIQUIS [Concomitant]
     Active Substance: APIXABAN
     Indication: Product used for unknown indication
     Route: 065

REACTIONS (9)
  - Thrombosis [Unknown]
  - Body height decreased [Unknown]
  - Weight decreased [Unknown]
  - Impaired work ability [Unknown]
  - Mobility decreased [Not Recovered/Not Resolved]
  - Discomfort [Not Recovered/Not Resolved]
  - Depression [Not Recovered/Not Resolved]
  - Myalgia [Not Recovered/Not Resolved]
  - Drug ineffective [Unknown]
